FAERS Safety Report 5497871-7 (Version None)
Quarter: 2007Q4

REPORT INFORMATION
  Report Type: 
  Country: None (occurrence: None)
  Receive Date: 20071018
  Receipt Date: 20070502
  Transmission Date: 20080405
  Serious: Yes (Other)
  Sender: FDA-Public Use
  Company Number: 2007036840

PATIENT
  Age: 41 Year
  Sex: Male

DRUGS (1)
  1. NEURONTIN [Suspect]
     Indication: NERVOUS SYSTEM DISORDER
     Dosage: 4000 MG (3 IN 1 D)
     Dates: start: 20021001

REACTIONS (3)
  - HYPERTENSION [None]
  - LIVER DISORDER [None]
  - MYOCARDIAL INFARCTION [None]
